FAERS Safety Report 7814168-8 (Version None)
Quarter: 2011Q4

REPORT INFORMATION
  Report Type: 
  Country: None (occurrence: None)
  Receive Date: 20111014
  Receipt Date: 20111005
  Transmission Date: 20120403
  Serious: Yes (Hospitalization)
  Sender: FDA-Public Use
  Company Number: DE-SANOFI-AVENTIS-2011SA054983

PATIENT
  Age: 58 Year
  Sex: Male
  Weight: 66 kg

DRUGS (13)
  1. OXALIPLATIN [Suspect]
     Route: 042
     Dates: start: 20110627, end: 20110627
  2. METOPROLOL SUCCINATE [Concomitant]
  3. IRBESARTAN AND HYDROCHLOROTHIAZIDE [Concomitant]
  4. PANTOPRAZOLE SODIUM [Concomitant]
  5. ALLOPURINOL [Concomitant]
  6. AMLODIPINE [Concomitant]
  7. TAMSULOSIN HCL [Concomitant]
  8. OXALIPLATIN [Suspect]
     Indication: RECTAL CANCER
     Route: 042
     Dates: start: 20110530, end: 20110530
  9. CEFUROXIME [Concomitant]
  10. THERAPEUTIC RADIOPHARMACEUTICALS [Suspect]
     Indication: RECTAL CANCER
     Dosage: 1.8 FRACTIONS/5 FRACTIONS PER WEEK/CUMMULATIVE DOSE 45 GY/ACTUAL DOSE 50.4GY
     Dates: start: 20110530, end: 20110711
  11. XELODA [Suspect]
     Indication: RECTAL CANCER
     Route: 048
     Dates: start: 20110530, end: 20110711
  12. FERROUS SULFATE TAB [Concomitant]
  13. VOLTAREN [Concomitant]

REACTIONS (1)
  - RENAL CANCER [None]
